FAERS Safety Report 5347527-6 (Version None)
Quarter: 2007Q2

REPORT INFORMATION
  Report Type: 
  Country: None (occurrence: None)
  Receive Date: 20070604
  Receipt Date: 20070604
  Transmission Date: 20071010
  Serious: Yes (Hospitalization)
  Sender: FDA-Public Use
  Company Number: None

PATIENT
  Sex: Female
  Weight: 77.3 kg

DRUGS (7)
  1. CISPLATIN [Suspect]
     Dosage: 86 MG
  2. DOXORUBICIN HYDROCHLORIDE [Suspect]
     Dosage: 77 MG
  3. G-CSF (FILGRASTIM, AMGEN) [Suspect]
     Dosage: 6 MG
  4. TAXOL [Suspect]
     Dosage: 275 MG
  5. BENZAPRIL [Concomitant]
  6. HYDROCHLOROTHIAZIDE [Concomitant]
  7. NORVASC [Concomitant]

REACTIONS (8)
  - DIALYSIS [None]
  - HAEMORRHOIDS [None]
  - INFECTION [None]
  - NAUSEA [None]
  - ORAL INTAKE REDUCED [None]
  - RECTAL HAEMORRHAGE [None]
  - RENAL FAILURE [None]
  - WHITE BLOOD CELL COUNT DECREASED [None]
